FAERS Safety Report 7211227-8 (Version None)
Quarter: 2011Q1

REPORT INFORMATION
  Report Type: 
  Country: None (occurrence: None)
  Receive Date: 20110105
  Receipt Date: 20101229
  Transmission Date: 20110831
  Serious: Yes (Other)
  Sender: FDA-Public Use
  Company Number: CA-JNJFOC-20110100278

PATIENT
  Sex: Female
  Weight: 95 kg

DRUGS (5)
  1. REMICADE [Suspect]
     Dosage: 23RD INFUSION
     Route: 042
  2. LORAZEPAM [Concomitant]
  3. REMICADE [Suspect]
     Indication: CROHN'S DISEASE
     Dosage: 55TH INFUSION
     Route: 042
  4. REMICADE [Suspect]
     Route: 042
  5. RAMIPRIL [Concomitant]
     Indication: HYPERTENSION

REACTIONS (4)
  - HYPERTENSION [None]
  - STRESS [None]
  - STAPHYLOCOCCAL INFECTION [None]
  - FISTULA [None]
